FAERS Safety Report 8831846 (Version 2)
Quarter: 2012Q4

REPORT INFORMATION
  Report Type: 
  Country: US (occurrence: US)
  Receive Date: 20121008
  Receipt Date: 20121228
  Transmission Date: 20130627
  Serious: Yes (Other)
  Sender: FDA-Public Use
  Company Number: US-ELI_LILLY_AND_COMPANY-US201210000945

PATIENT
  Age: 85 Year
  Sex: Female
  Weight: 58.96 kg

DRUGS (16)
  1. FORTEO [Suspect]
     Indication: OSTEOPOROSIS
     Dosage: 20 ug, qd
     Route: 058
     Dates: start: 20120319, end: 201208
  2. ATORVASTATIN [Concomitant]
     Dosage: 40 mg, qd
     Route: 048
  3. NORVASC [Concomitant]
     Dosage: 2.5 mg, qd
     Route: 048
  4. FOSAMAX [Concomitant]
     Dosage: 70 mg, weekly (1/W)
     Route: 048
  5. PROZAC [Concomitant]
     Dosage: 20 mg, each morning
  6. LASIX [Concomitant]
     Dosage: 20 mg, each morning
     Route: 048
  7. PROTONIX [Concomitant]
     Dosage: 40 mg, qd
     Route: 048
  8. COZAAR [Concomitant]
     Dosage: 50 mg, bid
     Route: 048
  9. LOPRESSOR [Concomitant]
     Dosage: 50 mg, bid
     Route: 048
  10. SINEMET [Concomitant]
     Dosage: UNK, tid
     Route: 048
  11. MAG-OX [Concomitant]
     Dosage: 400 mg, qd
     Route: 048
  12. VITAMIN C [Concomitant]
     Dosage: 500 mg, bid
     Route: 048
  13. NIZORAL [Concomitant]
     Dosage: UNK, bid
  14. SENNA LAXATIVE [Concomitant]
     Dosage: 8.6 mg, each evening
     Route: 048
  15. CALCIUM CITRATE W/VITAMIN D NOS [Concomitant]
     Dosage: UNK, bid
     Route: 048
  16. ASPIRIN [Concomitant]
     Dosage: 81 mg, qd

REACTIONS (1)
  - Lung carcinoma cell type unspecified stage I [Recovering/Resolving]
